FAERS Safety Report 8859133 (Version 1)
Quarter: 2012Q4

REPORT INFORMATION
  Report Type: 
  Country: US (occurrence: US)
  Receive Date: 20121024
  Receipt Date: 20121024
  Transmission Date: 20130627
  Serious: No
  Sender: FDA-Public Use
  Company Number: US-009507513-1210USA009933

PATIENT

DRUGS (1)
  1. FOSAMAX [Suspect]
     Dosage: 70 mg, qw

REACTIONS (2)
  - Incorrect product storage [Unknown]
  - No adverse event [Unknown]
